FAERS Safety Report 6917791-8 (Version None)
Quarter: 2010Q3

REPORT INFORMATION
  Report Type: 
  Country: None (occurrence: None)
  Receive Date: 20100810
  Receipt Date: 20100804
  Transmission Date: 20110219
  Serious: Yes (Hospitalization)
  Sender: FDA-Public Use
  Company Number: AR-B.I. PHARMACEUTICALS,INC./RIDGEFIELD-2010-RA-00255RA

PATIENT
  Age: 2 Year
  Sex: Male

DRUGS (1)
  1. TELMISARTAN [Suspect]
     Route: 048
     Dates: start: 20100803

REACTIONS (1)
  - ACCIDENTAL OVERDOSE [None]
